FAERS Safety Report 25860632 (Version 1)
Quarter: 2025Q3

REPORT INFORMATION
  Report Type: Spontaneous
  Country: US (occurrence: None)
  Receive Date: 20250926
  Receipt Date: 20250926
  Transmission Date: 20251020
  Serious: Yes (Hospitalization)
  Sender: FDA-CTU
  Company Number: None

PATIENT
  Sex: Male

DRUGS (10)
  1. RINVOQ [Suspect]
     Active Substance: UPADACITINIB
     Indication: Colitis ulcerative
     Dosage: 30 MG DAILY ORAL
     Route: 048
     Dates: start: 20250207
  2. RINVOQ [Suspect]
     Active Substance: UPADACITINIB
     Indication: Colitis
  3. DESCOVY [Concomitant]
     Active Substance: EMTRICITABINE\TENOFOVIR ALAFENAMIDE FUMARATE
  4. LIPITOR [Concomitant]
     Active Substance: ATORVASTATIN CALCIUM
  5. MULTI FOR HIM [Concomitant]
  6. PREDNISONE [Concomitant]
     Active Substance: PREDNISONE
  7. ASPIRIN 81 LOW DOSE [Concomitant]
  8. CALCIUM\VITAMIN D [Concomitant]
     Active Substance: CALCIUM\VITAMIN D
  9. IRON [Concomitant]
     Active Substance: IRON
  10. MAGNESIUM [Concomitant]
     Active Substance: MAGNESIUM

REACTIONS (1)
  - Haematochezia [None]
